FAERS Safety Report 4662622-2 (Version None)
Quarter: 2005Q2

REPORT INFORMATION
  Report Type: 
  Country: None (occurrence: None)
  Receive Date: 20050512
  Receipt Date: 20050426
  Transmission Date: 20051028
  Serious: Yes (Other)
  Sender: FDA-Public Use
  Company Number: GBS050417245

PATIENT
  Sex: Male

DRUGS (2)
  1. HUMATROPE [Suspect]
     Indication: GROWTH HORMONE DEFICIENCY
  2. CORTISONE [Concomitant]

REACTIONS (1)
  - NEOPLASM RECURRENCE [None]
